FAERS Safety Report 13724602 (Version 2)
Quarter: 2017Q3

REPORT INFORMATION
  Report Type: Report from Study
  Country: BR (occurrence: BR)
  Receive Date: 20170706
  Receipt Date: 20170720
  Transmission Date: 20171127
  Serious: Yes (Other)
  Sender: FDA-Public Use
  Company Number: PHHY2017BR099299

PATIENT
  Sex: Male
  Weight: 91 kg

DRUGS (3)
  1. DIOVAN [Suspect]
     Active Substance: VALSARTAN
     Indication: HYPERTENSION
  2. DIOVAN AMLO FIX [Suspect]
     Active Substance: AMLODIPINE\VALSARTAN
     Indication: PRODUCT USED FOR UNKNOWN INDICATION
     Dosage: 0.5 DF, QD IN THE MORNING (AMLODIPINE 5, VALSARTAN 320 UNITS NOT PROVIDED)
     Route: 048
  3. DIOVAN [Suspect]
     Active Substance: VALSARTAN
     Indication: ARRHYTHMIA
     Dosage: 1 DF, QD IN THE MORNING (VALSARTAN 160)
     Route: 048

REACTIONS (2)
  - Renal failure [Unknown]
  - Wrong technique in product usage process [Unknown]
